FAERS Safety Report 13505113 (Version 1)
Quarter: 2017Q2

REPORT INFORMATION
  Report Type: Spontaneous
  Country: US (occurrence: US)
  Receive Date: 20170502
  Receipt Date: 20170502
  Transmission Date: 20170830
  Serious: Yes (Hospitalization)
  Sender: FDA-Public Use
  Company Number: US-BAYER-2017-077818

PATIENT
  Age: 81 Year
  Sex: Female

DRUGS (1)
  1. ADEMPAS [Suspect]
     Active Substance: RIOCIGUAT
     Dosage: 1 MG, TID
     Route: 048

REACTIONS (5)
  - Emphysema [None]
  - Atelectasis [None]
  - Hypotension [None]
  - Pleural effusion [None]
  - Oxygen saturation decreased [None]
